FAERS Safety Report 13531228 (Version 8)
Quarter: 2021Q1

REPORT INFORMATION
  Report Type: Spontaneous
  Country: US (occurrence: US)
  Receive Date: 20170510
  Receipt Date: 20210323
  Transmission Date: 20210419
  Serious: Yes (Hospitalization)
  Sender: FDA-Public Use
  Company Number: US-PFIZER INC-2017193056

PATIENT
  Age: 67 Year
  Sex: Female
  Weight: 77.11 kg

DRUGS (1)
  1. THROMBIN?JMI [Suspect]
     Active Substance: THROMBIN
     Indication: PROCEDURAL HAEMORRHAGE
     Dosage: UNK (UNKNOWN DOSE UNKNOWN ROUTE ONCE EACH TIME)
     Dates: start: 201604, end: 201604

REACTIONS (4)
  - Drug hypersensitivity [Not Recovered/Not Resolved]
  - Pruritus [Not Recovered/Not Resolved]
  - Urticaria [Not Recovered/Not Resolved]
  - Disease recurrence [Not Recovered/Not Resolved]

NARRATIVE: CASE EVENT DATE: 201604
